FAERS Safety Report 9041641 (Version 1)
Quarter: 2013Q1

REPORT INFORMATION
  Report Type: Report from Study
  Country: US (occurrence: US)
  Receive Date: 20130129
  Receipt Date: 20130129
  Transmission Date: 20140127
  Serious: No
  Sender: FDA-Public Use
  Company Number: US-ABBOTT-12P-163-0901572-00

PATIENT
  Age: 65 Year
  Sex: Female

DRUGS (7)
  1. HUMIRA 40 MG/0.8 ML PEN [Suspect]
     Indication: PSORIATIC ARTHROPATHY
     Dates: start: 20111207
  2. KLOR-CON [Concomitant]
     Indication: MINERAL SUPPLEMENTATION
  3. LASIX [Concomitant]
     Indication: DIURETIC THERAPY
  4. DICLOFENAC [Concomitant]
     Indication: ARTHRITIS
  5. LISINOPRIL [Concomitant]
     Indication: HYPERTENSION
  6. METHOTREXATE [Concomitant]
     Indication: PSORIASIS
     Dosage: 10 PILLS EVERY OTHER WEEK
  7. OMEPRAZOLE [Concomitant]
     Indication: ARTHRITIS

REACTIONS (2)
  - Flatulence [Not Recovered/Not Resolved]
  - Diarrhoea [Not Recovered/Not Resolved]
